FAERS Safety Report 8614311-7 (Version None)
Quarter: 2012Q3

REPORT INFORMATION
  Report Type: 
  Country: None (occurrence: None)
  Receive Date: 20120823
  Receipt Date: 20120813
  Transmission Date: 20120928
  Serious: Yes (Life-Threatening)
  Sender: FDA-Public Use
  Company Number: GB-JNJFOC-20110608166

PATIENT
  Sex: Male
  Weight: 49.2 kg

DRUGS (4)
  1. REMICADE [Suspect]
     Indication: CROHN'S DISEASE
     Route: 042
     Dates: start: 20101001
  2. AZATHIOPRINE SODIUM [Concomitant]
  3. HYDROCORTISONE [Concomitant]
  4. REMICADE [Suspect]
     Route: 042
     Dates: start: 20110614

REACTIONS (3)
  - ANAPHYLACTIC REACTION [None]
  - INFUSION RELATED REACTION [None]
  - DYSPNOEA [None]
